FAERS Safety Report 8886225 (Version 1)
Quarter: 2012Q4

REPORT INFORMATION
  Report Type: Report from Study
  Country: DE (occurrence: DE)
  Receive Date: 20121105
  Receipt Date: 20121105
  Transmission Date: 20130627
  Serious: Yes (Hospitalization)
  Sender: FDA-Public Use
  Company Number: DE-ABBOTT-12P-062-0918373-00

PATIENT
  Age: 33 Year
  Sex: Female

DRUGS (7)
  1. HUMIRA 40 MG/0.8 ML PEN [Suspect]
     Indication: CROHN^S DISEASE
     Route: 058
     Dates: start: 20120221
  2. HUMIRA 40 MG/0.8 ML PEN [Suspect]
     Dosage: Dose increaed-4 injections
     Dates: start: 20121018, end: 20121018
  3. CORTISONE [Concomitant]
     Indication: PRODUCT USED FOR UNKNOWN INDICATION
     Dosage: 60 mg NOS
  4. BUDESONID [Concomitant]
     Indication: PRODUCT USED FOR UNKNOWN INDICATION
     Dosage: Aerosol for inhalation
  5. TRIMIPRAMIN (STANGLYL) [Concomitant]
     Indication: PRODUCT USED FOR UNKNOWN INDICATION
     Dosage: Not reported
  6. HYDROCHLOROTHIAZID [Concomitant]
     Indication: PRODUCT USED FOR UNKNOWN INDICATION
     Dosage: Not reported
  7. DEKRISTOL [Concomitant]
     Indication: PRODUCT USED FOR UNKNOWN INDICATION
     Dosage: Not reported

REACTIONS (8)
  - Abdominal pain [Recovering/Resolving]
  - Diarrhoea [Recovering/Resolving]
  - Vomiting [Not Recovered/Not Resolved]
  - Eructation [Not Recovered/Not Resolved]
  - Abdominal pain [Not Recovered/Not Resolved]
  - Back pain [Not Recovered/Not Resolved]
  - Purging [Unknown]
  - Diarrhoea [Not Recovered/Not Resolved]
